FAERS Safety Report 21258630 (Version 5)
Quarter: 2023Q1

REPORT INFORMATION
  Report Type: Spontaneous
  Country: JP (occurrence: JP)
  Receive Date: 20220826
  Receipt Date: 20230208
  Transmission Date: 20230417
  Serious: Yes (Other)
  Sender: FDA-Public Use
  Company Number: JP-ASTELLAS-2022JP012659

PATIENT
  Sex: Male

DRUGS (1)
  1. PADCEV [Suspect]
     Active Substance: ENFORTUMAB VEDOTIN-EJFV
     Indication: Transitional cell carcinoma
     Dosage: 1.25 MG/KG, ONCE WEEKLY, CONT. ONCE-WEEKLY DOSING CONT^D FOR 3 WEEKS AND REST AT WEEK 4 AS 1 CYCLE
     Route: 041
     Dates: start: 20220621, end: 20220816

REACTIONS (3)
  - Eye discharge [Unknown]
  - Alopecia [Unknown]
  - Cancer pain [Not Recovered/Not Resolved]

NARRATIVE: CASE EVENT DATE: 20220716
